FAERS Safety Report 17956536 (Version 16)
Quarter: 2021Q2

REPORT INFORMATION
  Report Type: Spontaneous
  Country: US (occurrence: US)
  Receive Date: 20200629
  Receipt Date: 20210616
  Transmission Date: 20210717
  Serious: No
  Sender: FDA-Public Use
  Company Number: US-DSJP-DSU-2020-118496

PATIENT
  Age: 60 Year
  Sex: Female

DRUGS (2)
  1. TURALIO [Suspect]
     Active Substance: PEXIDARTINIB HYDROCHLORIDE
     Dosage: 400 MG, BID
     Route: 048
  2. TURALIO [Suspect]
     Active Substance: PEXIDARTINIB HYDROCHLORIDE
     Indication: NEOPLASM
     Dosage: 400 MG, BID
     Route: 048
     Dates: start: 20200622

REACTIONS (24)
  - Somnolence [Recovering/Resolving]
  - Electric shock sensation [Unknown]
  - Hypertension [Not Recovered/Not Resolved]
  - Alopecia [Not Recovered/Not Resolved]
  - Lethargy [Recovering/Resolving]
  - Contusion [Recovered/Resolved]
  - Nausea [Recovered/Resolved]
  - Dyspepsia [Unknown]
  - Skin discolouration [Not Recovered/Not Resolved]
  - Fatigue [Unknown]
  - Hyperacusis [Recovered/Resolved]
  - Pruritus [Recovered/Resolved]
  - Irritability [Recovering/Resolving]
  - Fluid overload [Not Recovered/Not Resolved]
  - Therapeutic response unexpected [Not Recovered/Not Resolved]
  - Off label use [Unknown]
  - Pain in extremity [Unknown]
  - Hair colour changes [Not Recovered/Not Resolved]
  - Onychoclasis [Not Recovered/Not Resolved]
  - Migraine [Recovered/Resolved]
  - Dry skin [Not Recovered/Not Resolved]
  - Product dose omission issue [Unknown]
  - Adverse event [Unknown]
  - Tinnitus [Recovered/Resolved]

NARRATIVE: CASE EVENT DATE: 2020
